FAERS Safety Report 9026486 (Version 1)
Quarter: 2013Q1

REPORT INFORMATION
  Report Type: Spontaneous
  Country: JP (occurrence: JP)
  Receive Date: 20130123
  Receipt Date: 20130123
  Transmission Date: 20140127
  Serious: Yes (Other)
  Sender: FDA-Public Use
  Company Number: JP-JNJFOC-20111102508

PATIENT
  Age: 62 Year
  Sex: Male

DRUGS (10)
  1. DUROTEP MT [Suspect]
     Indication: PAIN
     Route: 062
  2. DUROTEP MT [Suspect]
     Indication: PAIN
     Route: 062
  3. DUROTEP MT [Suspect]
     Indication: PAIN
     Route: 062
  4. DUROTEP MT [Suspect]
     Indication: PAIN
     Dosage: STOPPED ON 01-APR-2011
     Route: 062
  5. DUROTEP MT [Suspect]
     Indication: PAIN
     Route: 062
  6. DUROTEP MT [Suspect]
     Indication: PAIN
     Route: 062
     Dates: start: 20110401
  7. TRAMCET [Suspect]
     Indication: PAIN
     Route: 048
  8. MORPHINE HYDROCHLORIDE [Suspect]
     Indication: PAIN
     Route: 065
  9. MORPHINE HYDROCHLORIDE [Suspect]
     Indication: PAIN
     Dosage: 60-120 MG PER DAY
     Route: 065
  10. DULOXETINE HYDROCHLORIDE [Interacting]
     Indication: PRODUCT USED FOR UNKNOWN INDICATION
     Route: 065

REACTIONS (8)
  - Drug withdrawal syndrome [Unknown]
  - Serotonin syndrome [Unknown]
  - Drug interaction [Unknown]
  - Hyperaesthesia [Unknown]
  - Overdose [Recovering/Resolving]
  - Gait disturbance [Recovering/Resolving]
  - Nausea [Recovering/Resolving]
  - Malaise [Recovering/Resolving]
